FAERS Safety Report 19974274 (Version 1)
Quarter: 2021Q4

REPORT INFORMATION
  Report Type: Spontaneous
  Country: US (occurrence: US)
  Receive Date: 20211019
  Receipt Date: 20211019
  Transmission Date: 20220303
  Serious: Yes (Hospitalization)
  Sender: FDA-Public Use
  Company Number: None

PATIENT
  Age: 56 Year
  Sex: Female
  Weight: 80 kg

DRUGS (1)
  1. LISINOPRIL [Suspect]
     Active Substance: LISINOPRIL
     Indication: Hypertension
     Route: 048
     Dates: start: 20210821, end: 20210916

REACTIONS (5)
  - Dizziness [None]
  - Cough [None]
  - Hypotension [None]
  - Dizziness [None]
  - Wheezing [None]

NARRATIVE: CASE EVENT DATE: 20210915
